FAERS Safety Report 8961910 (Version 1)
Quarter: 2012Q4

REPORT INFORMATION
  Report Type: 
  Country: CA (occurrence: CA)
  Receive Date: 20121213
  Receipt Date: 20121213
  Transmission Date: 20130627
  Serious: Yes (Other)
  Sender: FDA-Public Use
  Company Number: CA-PFIZER INC-2012311529

PATIENT
  Age: 58 Year
  Sex: Male

DRUGS (11)
  1. PAROXETINE [Suspect]
     Dosage: 5 and 10 mg per day
  2. SERTRALINE HCL [Suspect]
     Indication: COMPULSIONS
     Dosage: 50 mg, UNK
  3. OLANZAPINE [Suspect]
     Dosage: 15 mg daily
     Route: 048
  4. QUETIAPINE FUMARATE [Suspect]
     Dosage: 25 mg daily
  5. CITALOPRAM HBR [Suspect]
     Dosage: 10 mg, 2x/day
     Route: 048
  6. ESCITALOPRAM OXALATE [Suspect]
     Dosage: 10 mg daily
  7. HALOPERIDOL [Suspect]
     Dosage: 1 mg daily
  8. CLOMIPRAMINE [Suspect]
     Indication: OBSESSIVE-COMPULSIVE DISORDER
     Dosage: 25 mg, daily
     Route: 048
  9. CLOMIPRAMINE [Suspect]
     Dosage: 100 mg
     Route: 048
  10. VALPROIC ACID [Suspect]
     Dosage: UNK
  11. TRAZODONE [Suspect]
     Dosage: 100 mg, UNK

REACTIONS (9)
  - Parkinsonism [Unknown]
  - Resting tremor [Unknown]
  - Cogwheel rigidity [Unknown]
  - Bradykinesia [Unknown]
  - Confusional state [Unknown]
  - Hyperhidrosis [Unknown]
  - Abdominal pain upper [Unknown]
  - Drug intolerance [Unknown]
  - Drug ineffective [Unknown]
